FAERS Safety Report 8794234 (Version 2)
Quarter: 2013Q4

REPORT INFORMATION
  Report Type: Spontaneous
  Country: US (occurrence: US)
  Receive Date: 20120918
  Receipt Date: 20131105
  Transmission Date: 20140711
  Serious: Yes (Other)
  Sender: FDA-Public Use
  Company Number: US-MERCK-1209USA005725

PATIENT
  Age: 65 Year
  Sex: Male

DRUGS (4)
  1. SAPHRIS [Suspect]
     Dosage: 20 MG, QPM
     Route: 060
  2. WELLBUTRIN [Suspect]
  3. LEXAPRO [Suspect]
  4. ALPRAZOLAM [Concomitant]
     Dosage: 4 MG, QPM

REACTIONS (3)
  - Mania [Unknown]
  - Inappropriate schedule of drug administration [Unknown]
  - Oedema peripheral [Unknown]
